FAERS Safety Report 16173658 (Version 1)
Quarter: 2019Q2

REPORT INFORMATION
  Report Type: Spontaneous
  Country: US (occurrence: US)
  Receive Date: 20190408
  Receipt Date: 20190408
  Transmission Date: 20190711
  Serious: Yes (Other)
  Sender: FDA-Public Use
  Company Number: None

PATIENT
  Age: 34 Year
  Sex: Female
  Weight: 56.25 kg

DRUGS (5)
  1. SYNTHROID [Concomitant]
     Active Substance: LEVOTHYROXINE SODIUM
  2. PRENATAL VITAMIN [Concomitant]
     Active Substance: VITAMINS
  3. WELLBUTRIN [Concomitant]
     Active Substance: BUPROPION HYDROCHLORIDE
  4. EMGALITY [Suspect]
     Active Substance: GALCANEZUMAB-GNLM
     Indication: MIGRAINE PROPHYLAXIS
     Dates: start: 20190128, end: 20190325
  5. PRSTIQ [Concomitant]

REACTIONS (4)
  - Loss of personal independence in daily activities [None]
  - Maternal exposure during pregnancy [None]
  - Dizziness [None]
  - Pregnancy test positive [None]

NARRATIVE: CASE EVENT DATE: 20190128
